FAERS Safety Report 22753548 (Version 2)
Quarter: 2023Q4

REPORT INFORMATION
  Report Type: Report from Study
  Country: US (occurrence: US)
  Receive Date: 20230726
  Receipt Date: 20231026
  Transmission Date: 20240110
  Serious: No
  Sender: FDA-Public Use
  Company Number: US-IDORSIA-006230-2023-US

PATIENT
  Sex: Male

DRUGS (4)
  1. QUVIVIQ [Suspect]
     Active Substance: DARIDOREXANT
     Indication: Insomnia
     Dosage: 50 MG, QD
     Route: 048
  2. QUVIVIQ [Suspect]
     Active Substance: DARIDOREXANT
     Dosage: 25 MG, QD
     Route: 048
  3. SEROQUEL XR [Concomitant]
     Active Substance: QUETIAPINE FUMARATE
     Dosage: AT NIGHT
  4. LAMOTRIGINE [Concomitant]
     Active Substance: LAMOTRIGINE
     Dosage: AT NIGHT

REACTIONS (2)
  - Confusional state [Unknown]
  - Fatigue [Unknown]
